FAERS Safety Report 5500598-6 (Version None)
Quarter: 2007Q4

REPORT INFORMATION
  Report Type: 
  Country: None (occurrence: None)
  Receive Date: 20071029
  Receipt Date: 20071022
  Transmission Date: 20080405
  Serious: Yes (Hospitalization, Other)
  Sender: FDA-Public Use
  Company Number: JP-AVENTIS-200717305GDDC

PATIENT
  Age: 81 Year
  Sex: Female

DRUGS (15)
  1. RIFADIN [Suspect]
     Indication: PULMONARY TUBERCULOSIS
     Route: 048
     Dates: start: 20060911, end: 20070116
  2. RIFADIN [Suspect]
     Route: 048
     Dates: start: 20070225, end: 20070412
  3. ISCOTIN                            /00030201/ [Suspect]
     Indication: PULMONARY TUBERCULOSIS
     Route: 048
     Dates: start: 20060911, end: 20070116
  4. ISCOTIN                            /00030201/ [Suspect]
     Route: 048
     Dates: start: 20070225, end: 20070412
  5. ETHAMBUTOL HCL [Concomitant]
     Indication: PULMONARY TUBERCULOSIS
     Route: 048
     Dates: start: 20060911, end: 20070116
  6. ETHAMBUTOL HCL [Concomitant]
     Route: 048
     Dates: start: 20070225, end: 20070412
  7. PYDOXAL [Concomitant]
     Indication: PULMONARY TUBERCULOSIS
     Route: 048
     Dates: start: 20060911, end: 20070116
  8. PYDOXAL [Concomitant]
     Route: 048
     Dates: start: 20070225, end: 20070412
  9. NU-LOTAN [Concomitant]
     Route: 048
  10. ASPIRIN [Concomitant]
     Route: 048
  11. SIGMART [Concomitant]
     Route: 048
  12. ITOROL [Concomitant]
     Route: 048
  13. LANSOPRAZOLE [Concomitant]
     Route: 048
  14. ZYLORIC [Concomitant]
     Route: 048
  15. HOKUNALIN [Concomitant]
     Dosage: DOSE: UNK
     Route: 023

REACTIONS (2)
  - EOSINOPHILIC PNEUMONIA [None]
  - HEPATITIS [None]
